FAERS Safety Report 5355952-2 (Version None)
Quarter: 2007Q2

REPORT INFORMATION
  Report Type: 
  Country: None (occurrence: None)
  Receive Date: 20070613
  Receipt Date: 20070612
  Transmission Date: 20071010
  Serious: Yes (Death, Life-Threatening)
  Sender: FDA-Public Use
  Company Number: UA-SANOFI-SYNTHELABO-D01200703849

PATIENT
  Sex: Male
  Weight: 82 kg

DRUGS (7)
  1. ACETYLSALICYLIC ACID SRT [Concomitant]
     Indication: CORONARY ARTERY DISEASE
     Dosage: 100 MG
     Route: 065
     Dates: start: 20061101, end: 20070226
  2. SIMVASTATIN [Concomitant]
     Indication: HYPERCHOLESTEROLAEMIA
     Dosage: 10 MG
     Route: 065
     Dates: start: 20061001
  3. IVABRADINUM [Concomitant]
     Indication: CORONARY ARTERY DISEASE
     Dosage: 15 MG
     Route: 065
     Dates: start: 20061101
  4. GLICLAZIDE [Concomitant]
     Indication: DIABETES MELLITUS
     Dosage: 30 MG
     Route: 065
     Dates: start: 20060301
  5. QUINAPRIL [Concomitant]
     Indication: HYPERTENSION
     Dosage: 10 MG
     Route: 065
     Dates: start: 20061101
  6. CLOPIDOGREL [Suspect]
     Dosage: 75 MG
     Route: 048
     Dates: start: 20070228
  7. SL650472 [Suspect]
     Indication: PERIPHERAL ARTERIAL OCCLUSIVE DISEASE
     Dosage: 10 MG DAILY OF SL650472 VS 100 MG BID OF CILOSTAZOL OR PLACEBO
     Route: 048
     Dates: start: 20070317

REACTIONS (2)
  - ANGINA UNSTABLE [None]
  - SUDDEN DEATH [None]
